FAERS Safety Report 25458449 (Version 1)
Quarter: 2025Q2

REPORT INFORMATION
  Report Type: Spontaneous
  Country: JP (occurrence: JP)
  Receive Date: 20250620
  Receipt Date: 20250620
  Transmission Date: 20250717
  Serious: Yes (Hospitalization)
  Sender: JOHNSON AND JOHNSON
  Company Number: JP-JNJFOC-20250625370

PATIENT
  Age: 37 Year
  Sex: Female

DRUGS (33)
  1. INVEGA [Suspect]
     Active Substance: PALIPERIDONE
     Indication: Schizophrenia
     Dosage: AFTER BREAKFAST
     Route: 048
     Dates: start: 20220203, end: 20220302
  2. INVEGA [Suspect]
     Active Substance: PALIPERIDONE
     Dosage: AFTER BREAKFAST
     Route: 048
     Dates: start: 20220303, end: 20220330
  3. INVEGA [Suspect]
     Active Substance: PALIPERIDONE
     Dosage: AFTER BREAKFAST
     Route: 048
     Dates: start: 20220331, end: 20220427
  4. INVEGA [Suspect]
     Active Substance: PALIPERIDONE
     Dosage: AFTER BREAKFAST
     Route: 048
     Dates: start: 20220428, end: 20220525
  5. INVEGA [Suspect]
     Active Substance: PALIPERIDONE
     Dosage: AFTER BREAKFAST
     Route: 048
     Dates: start: 20220526, end: 20220622
  6. INVEGA [Suspect]
     Active Substance: PALIPERIDONE
     Dosage: AFTER BREAKFAST
     Route: 048
     Dates: start: 20220626, end: 20220817
  7. INVEGA [Suspect]
     Active Substance: PALIPERIDONE
     Dosage: AFTER BREAKFAST
     Route: 048
     Dates: start: 20220818, end: 20220914
  8. INVEGA [Suspect]
     Active Substance: PALIPERIDONE
     Dosage: AFTER DINNER
     Route: 048
     Dates: start: 20240104, end: 20240114
  9. INVEGA [Suspect]
     Active Substance: PALIPERIDONE
     Dosage: AFTER DINNER
     Route: 048
     Dates: start: 20240115, end: 20240305
  10. ASENAPINE MALEATE [Concomitant]
     Active Substance: ASENAPINE MALEATE
     Indication: Schizophrenia
     Dosage: AT BEDTIME
     Route: 048
     Dates: start: 20191227, end: 20200102
  11. ASENAPINE MALEATE [Concomitant]
     Active Substance: ASENAPINE MALEATE
     Dosage: BEFORE BEDTIME
     Route: 048
     Dates: start: 20200103, end: 20200123
  12. ASENAPINE MALEATE [Concomitant]
     Active Substance: ASENAPINE MALEATE
     Dosage: AT BEDTIME
     Route: 048
     Dates: start: 20200124, end: 20200206
  13. ASENAPINE MALEATE [Concomitant]
     Active Substance: ASENAPINE MALEATE
     Dosage: AT BEDTIME
     Route: 048
     Dates: start: 20200207, end: 20200607
  14. ASENAPINE MALEATE [Concomitant]
     Active Substance: ASENAPINE MALEATE
     Dosage: AFTER DINNER
     Route: 048
     Dates: start: 20200608, end: 20201011
  15. ASENAPINE MALEATE [Concomitant]
     Active Substance: ASENAPINE MALEATE
     Dosage: AFTER DINNER
     Route: 048
     Dates: start: 20201013, end: 20201023
  16. ASENAPINE MALEATE [Concomitant]
     Active Substance: ASENAPINE MALEATE
     Dosage: AFTER DINNER
     Route: 048
     Dates: start: 20201024, end: 20201225
  17. ASENAPINE MALEATE [Concomitant]
     Active Substance: ASENAPINE MALEATE
     Dosage: AFTER DINNER
     Route: 048
     Dates: start: 20201226, end: 20210523
  18. ASENAPINE MALEATE [Concomitant]
     Active Substance: ASENAPINE MALEATE
     Dosage: AFTER DINNER
     Route: 048
     Dates: start: 20210524, end: 20210620
  19. ASENAPINE MALEATE [Concomitant]
     Active Substance: ASENAPINE MALEATE
     Dosage: AFTER DINNER
     Route: 048
     Dates: start: 20210621, end: 20220622
  20. ASENAPINE MALEATE [Concomitant]
     Active Substance: ASENAPINE MALEATE
     Dosage: AFTER DINNER
     Route: 048
     Dates: start: 20220626, end: 20230927
  21. ASENAPINE MALEATE [Concomitant]
     Active Substance: ASENAPINE MALEATE
     Dosage: AFTER DINNER
     Route: 048
     Dates: start: 20230928, end: 20240103
  22. LATUDA [Concomitant]
     Active Substance: LURASIDONE HYDROCHLORIDE
     Indication: Schizophrenia
     Dosage: AFTER DINNER
     Route: 048
     Dates: start: 20211111, end: 20211208
  23. LATUDA [Concomitant]
     Active Substance: LURASIDONE HYDROCHLORIDE
     Dosage: DINNER
     Route: 048
     Dates: start: 20211209, end: 20220105
  24. LATUDA [Concomitant]
     Active Substance: LURASIDONE HYDROCHLORIDE
     Dosage: AFTER DINNER
     Route: 048
     Dates: start: 20220106, end: 20220202
  25. LATUDA [Concomitant]
     Active Substance: LURASIDONE HYDROCHLORIDE
     Dosage: AFTER DINNER
     Route: 048
     Dates: start: 20220203, end: 20220302
  26. ABILIFY [Concomitant]
     Active Substance: ARIPIPRAZOLE
     Indication: Schizophrenia
     Dosage: AFTER BREAKFAST
     Route: 048
     Dates: start: 20220428, end: 20220525
  27. ABILIFY [Concomitant]
     Active Substance: ARIPIPRAZOLE
     Dosage: AT BEDTIME
     Route: 048
     Dates: start: 20241219, end: 20250312
  28. ABILIFY [Concomitant]
     Active Substance: ARIPIPRAZOLE
     Dosage: AT BEDTIME
     Route: 048
     Dates: start: 20250410
  29. VALPROATE SODIUM [Concomitant]
     Active Substance: VALPROATE SODIUM
     Indication: Schizophrenia
     Dosage: AFTER BREAKFAST AND DINNER
     Route: 048
     Dates: start: 20220626, end: 20221012
  30. VALPROATE SODIUM [Concomitant]
     Active Substance: VALPROATE SODIUM
     Dosage: AFTER BREAKFAST AND DINNER
     Route: 048
     Dates: start: 20221013, end: 20230906
  31. HALOPERIDOL [Concomitant]
     Active Substance: HALOPERIDOL
     Indication: Schizophrenia
     Dosage: AFTER DINNER
     Route: 048
     Dates: start: 20220721, end: 20220817
  32. HALOPERIDOL [Concomitant]
     Active Substance: HALOPERIDOL
     Dosage: AFTER DINNER
     Route: 048
     Dates: start: 20220818, end: 20220914
  33. HALOPERIDOL [Concomitant]
     Active Substance: HALOPERIDOL
     Dosage: AFTER BREAKFAST AND DINNER
     Route: 048
     Dates: start: 20220915, end: 20230906

REACTIONS (1)
  - Hospitalisation [Recovered/Resolved]

NARRATIVE: CASE EVENT DATE: 20240201
